FAERS Safety Report 9290192 (Version 1)
Quarter: 2013Q2

REPORT INFORMATION
  Report Type: Spontaneous
  Country: US (occurrence: US)
  Receive Date: 20130515
  Receipt Date: 20130515
  Transmission Date: 20140414
  Serious: Yes (Hospitalization)
  Sender: FDA-Public Use
  Company Number: US-PFIZER INC-2013147028

PATIENT
  Age: 87 Year
  Sex: Female

DRUGS (2)
  1. SUTENT [Suspect]
     Indication: RENAL CANCER
     Dosage: 37.5 MG, QD,
     Route: 048
     Dates: start: 20130318
  2. SUTENT [Suspect]
     Indication: LUNG NEOPLASM MALIGNANT

REACTIONS (2)
  - Dehydration [Unknown]
  - Aphasia [Unknown]
